FAERS Safety Report 9471085 (Version 1)
Quarter: 2013Q3

REPORT INFORMATION
  Report Type: Spontaneous
  Country: US (occurrence: US)
  Receive Date: 20130822
  Receipt Date: 20130822
  Transmission Date: 20140515
  Serious: Yes (Hospitalization)
  Sender: FDA-Public Use
  Company Number: US-BAYER-2013-101061

PATIENT
  Age: 18 Year
  Sex: Female
  Weight: 83.8 kg

DRUGS (2)
  1. GIANVI [Suspect]
     Dosage: UNK
     Dates: start: 20110930
  2. KARIVA [Concomitant]

REACTIONS (1)
  - Deep vein thrombosis [None]
